FAERS Safety Report 6623471-9 (Version None)
Quarter: 2010Q1

REPORT INFORMATION
  Report Type: 
  Country: None (occurrence: None)
  Receive Date: 20100310
  Receipt Date: 20100304
  Transmission Date: 20100710
  Serious: Yes (Hospitalization, Other)
  Sender: FDA-Public Use
  Company Number: DE-BRISTOL-MYERS SQUIBB COMPANY-14942353

PATIENT
  Age: 24 Year
  Sex: Male
  Weight: 88 kg

DRUGS (7)
  1. ABILIFY [Suspect]
     Indication: SCHIZOPHRENIA
     Dosage: INTERRUPTED ON 15JAN2010
     Route: 048
     Dates: start: 20100114, end: 20100115
  2. ABILIFY [Suspect]
     Indication: DELUSION
     Dosage: INTERRUPTED ON 15JAN2010
     Route: 048
     Dates: start: 20100114, end: 20100115
  3. NEUROCIL [Suspect]
  4. CLOZAPINE [Concomitant]
     Indication: DELUSION
     Dosage: FOR YRS
     Route: 048
  5. HALDOL [Concomitant]
     Indication: DELUSION
     Dosage: FOR YRS
     Route: 048
  6. ORFIRIL [Concomitant]
     Indication: AFFECT LABILITY
     Route: 048
     Dates: start: 20091101
  7. DIAZEPAM [Concomitant]
     Indication: TENSION
     Route: 048

REACTIONS (6)
  - AGGRESSION [None]
  - AGITATION [None]
  - APATHY [None]
  - DELUSION [None]
  - FATIGUE [None]
  - RESTLESSNESS [None]
